FAERS Safety Report 24230118 (Version 1)
Quarter: 2024Q3

REPORT INFORMATION
  Report Type: Report from Study
  Country: VN (occurrence: VN)
  Receive Date: 20240820
  Receipt Date: 20240820
  Transmission Date: 20241017
  Serious: Yes (Other)
  Sender: INCYTE
  Company Number: VN-002147023-NVSC2024VN166884

PATIENT

DRUGS (1)
  1. RUXOLITINIB [Suspect]
     Active Substance: RUXOLITINIB
     Indication: Myelofibrosis
     Dosage: 20 MG, BID (1 TABLET/TIME, TWICE/DAY)
     Route: 048
     Dates: start: 20240814

REACTIONS (1)
  - Chronic hepatitis B [Unknown]
